FAERS Safety Report 17107343 (Version 3)
Quarter: 2020Q2

REPORT INFORMATION
  Report Type: Spontaneous
  Country: US (occurrence: US)
  Receive Date: 20191204
  Receipt Date: 20200504
  Transmission Date: 20200713
  Serious: No
  Sender: FDA-Public Use
  Company Number: US-BRISTOL-MYERS SQUIBB COMPANY-BMS-2019-114653

PATIENT
  Age: 68 Year
  Sex: Female

DRUGS (1)
  1. BELATACEPT [Suspect]
     Active Substance: BELATACEPT
     Indication: LUNG TRANSPLANT
     Dosage: 400 MILLIGRAM, QMO
     Route: 042
     Dates: start: 20191127

REACTIONS (2)
  - Intercepted product preparation error [Unknown]
  - Intentional product use issue [Unknown]

NARRATIVE: CASE EVENT DATE: 20191127
